FAERS Safety Report 9179659 (Version 1)
Quarter: 2012Q4

REPORT INFORMATION
  Report Type: 
  Country: NL (occurrence: NL)
  Receive Date: 20121029
  Receipt Date: 20121029
  Transmission Date: 20130627
  Serious: Yes (Other)
  Sender: FDA-Public Use
  Company Number: NL-GLAXOSMITHKLINE-B0840721A

PATIENT
  Sex: Female

DRUGS (4)
  1. ZINNAT [Suspect]
     Indication: PRODUCT USED FOR UNKNOWN INDICATION
     Dosage: 250MG Twice per day
     Route: 048
     Dates: start: 20110909
  2. LAMOTRIGINE [Concomitant]
     Dosage: 100MG Twice per day
     Dates: start: 201005
  3. AVAMYS [Concomitant]
     Dosage: 50MG Twice per day
     Route: 045
  4. ETHINYLESTRADIOL + LEVONORGESTREL [Concomitant]
     Route: 048

REACTIONS (1)
  - Epilepsy [Recovered/Resolved]
